FAERS Safety Report 8549099-1 (Version None)
Quarter: 2012Q3

REPORT INFORMATION
  Report Type: 
  Country: None (occurrence: None)
  Receive Date: 20120730
  Receipt Date: 20120723
  Transmission Date: 20120928
  Serious: No
  Sender: FDA-Public Use
  Company Number: US-PFIZER INC-2012181438

PATIENT
  Sex: Female
  Weight: 68 kg

DRUGS (3)
  1. ESTROGENS CONJUGATED [Suspect]
     Indication: HORMONE REPLACEMENT THERAPY
     Dosage: UNK
     Route: 048
     Dates: start: 20120515
  2. MEDROXYPROGESTERONE ACETATE [Suspect]
     Dosage: UNK
     Route: 048
  3. MEDROXYPROGESTERONE ACETATE [Suspect]
     Indication: HORMONE REPLACEMENT THERAPY
     Dosage: 5 MG, 1X/DAY
     Route: 048
     Dates: start: 20120515

REACTIONS (2)
  - DRUG INEFFECTIVE [None]
  - WEIGHT INCREASED [None]
